FAERS Safety Report 12988831 (Version 1)
Quarter: 2016Q4

REPORT INFORMATION
  Report Type: Spontaneous
  Country: TW (occurrence: TW)
  Receive Date: 20161130
  Receipt Date: 20161130
  Transmission Date: 20170207
  Serious: Yes (Hospitalization)
  Sender: FDA-Public Use
  Company Number: TW-AMGEN-TWNSP2016166664

PATIENT
  Age: 62 Year
  Sex: Female

DRUGS (2)
  1. ENBREL [Suspect]
     Active Substance: ETANERCEPT
     Indication: RHEUMATOID ARTHRITIS
     Dosage: 25 MG, 2X/WEEK
     Route: 058
     Dates: start: 20110303
  2. MTX [Concomitant]
     Active Substance: METHOTREXATE SODIUM
     Indication: RHEUMATOID ARTHRITIS
     Dosage: 6 DF, WEEKLY

REACTIONS (3)
  - Urinary tract infection [Unknown]
  - Abdominal pain [Unknown]
  - Pyrexia [Unknown]
